FAERS Safety Report 19458650 (Version 2)
Quarter: 2021Q3

REPORT INFORMATION
  Report Type: Report from Study
  Country: NL (occurrence: NL)
  Receive Date: 20210624
  Receipt Date: 20210811
  Transmission Date: 20211014
  Serious: Yes (Hospitalization, Other)
  Sender: FDA-Public Use
  Company Number: NL-EISAI MEDICAL RESEARCH-EC-2021-094952

PATIENT
  Sex: Male

DRUGS (4)
  1. PEMBROLIZUMAB. [Suspect]
     Active Substance: PEMBROLIZUMAB
     Indication: MESOTHELIOMA
     Route: 041
     Dates: start: 20210323, end: 20210504
  2. LENVATINIB [Suspect]
     Active Substance: LENVATINIB
     Indication: MESOTHELIOMA
     Route: 048
     Dates: start: 20210323, end: 20210504
  3. LENVATINIB [Suspect]
     Active Substance: LENVATINIB
     Route: 048
     Dates: start: 20210616, end: 20210616
  4. PEMBROLIZUMAB. [Suspect]
     Active Substance: PEMBROLIZUMAB
     Route: 041
     Dates: start: 20210603, end: 20210603

REACTIONS (2)
  - Dyspnoea [Unknown]
  - Embolism [Unknown]

NARRATIVE: CASE EVENT DATE: 20210510
